FAERS Safety Report 5632891-0 (Version None)
Quarter: 2008Q1

REPORT INFORMATION
  Report Type: 
  Country: None (occurrence: None)
  Receive Date: 20080212
  Receipt Date: 20080129
  Transmission Date: 20080703
  Serious: Yes (Hospitalization)
  Sender: FDA-Public Use
  Company Number: US022576

PATIENT
  Age: 68 Year
  Sex: Female

DRUGS (1)
  1. MODIODAL [Suspect]
     Indication: NARCOLEPSY
     Dosage: 200 MG QD ORAL
     Route: 048

REACTIONS (1)
  - ANKLE FRACTURE [None]
